FAERS Safety Report 5402692-7 (Version None)
Quarter: 2007Q3

REPORT INFORMATION
  Report Type: 
  Country: None (occurrence: None)
  Receive Date: 20070730
  Receipt Date: 20070730
  Transmission Date: 20080115
  Serious: Yes (Life-Threatening, Hospitalization)
  Sender: FDA-Public Use
  Company Number: None

PATIENT
  Age: 15 Year
  Sex: Female
  Weight: 87 kg

DRUGS (1)
  1. HESPAN 6% HETASTARCH/ 0.9% NORMAL B.BRAUN [Suspect]
     Indication: HYPOVOLAEMIA
     Dosage: 500 ML 1 TIME IV BOLUS
     Route: 040
     Dates: start: 20070613, end: 20070613

REACTIONS (5)
  - BRONCHOSPASM [None]
  - FLUSHING [None]
  - PROCEDURAL HYPOTENSION [None]
  - SKIN TEST POSITIVE [None]
  - TACHYCARDIA [None]
